FAERS Safety Report 14318536 (Version 6)
Quarter: 2018Q1

REPORT INFORMATION
  Report Type: Spontaneous
  Country: US (occurrence: US)
  Receive Date: 20171222
  Receipt Date: 20180314
  Transmission Date: 20180509
  Serious: No
  Sender: FDA-Public Use
  Company Number: US-GLAXOSMITHKLINE-US2017197739

PATIENT
  Sex: Female
  Weight: 119.73 kg

DRUGS (2)
  1. TANZEUM [Suspect]
     Active Substance: ALBIGLUTIDE
     Indication: DIABETES MELLITUS
     Dosage: 50 MG, WE
     Route: 058
     Dates: start: 201709, end: 201712
  2. TANZEUM [Suspect]
     Active Substance: ALBIGLUTIDE
     Dosage: 50 MG, WE
     Route: 058

REACTIONS (3)
  - Wrong technique in device usage process [Unknown]
  - Device malfunction [Unknown]
  - Product quality issue [Unknown]
